FAERS Safety Report 9176524 (Version 1)
Quarter: 2013Q1

REPORT INFORMATION
  Report Type: Spontaneous
  Country: FR (occurrence: None)
  Receive Date: 20130319
  Receipt Date: 20130319
  Transmission Date: 20140127
  Serious: Yes (Other)
  Sender: FDA-Public Use
  Company Number: FK201300826

PATIENT
  Sex: Male

DRUGS (4)
  1. FLUOROURACIL [Suspect]
     Dosage: CYCLICAL, INTRAVENOUS (NOT OTHERWISE SPECIFIED)
     Route: 042
     Dates: start: 201212, end: 201212
  2. FOLINIC ACID [Suspect]
     Dosage: CYCLICAL, INTRAVENOUS (NOT OTHERWISE SPECIFIED)
     Route: 042
     Dates: start: 201212, end: 201212
  3. OXALIPLATIN [Suspect]
     Dosage: CYCLICAL, INTRAVENOUS (NOT OTHERWISE SPECIFIED)
     Route: 042
     Dates: start: 201212, end: 201212
  4. ZIVAFLIBERCEPT [Suspect]
     Dosage: CYCLICAL, INTRAVENOUS (NOT OTHERWISE SPECIFIED)
     Route: 042
     Dates: start: 201212, end: 201212

REACTIONS (4)
  - Proteinuria [None]
  - Haematuria [None]
  - Blood creatinine increased [None]
  - Hypertension [None]
